FAERS Safety Report 22684120 (Version 2)
Quarter: 2024Q3

REPORT INFORMATION
  Report Type: Spontaneous
  Country: US (occurrence: US)
  Receive Date: 20230709
  Receipt Date: 20240921
  Transmission Date: 20241016
  Serious: Yes (Other)
  Sender: LUPIN
  Company Number: US-LUPIN PHARMACEUTICALS INC.-2023-05338

PATIENT

DRUGS (1)
  1. ALBUTEROL SULFATE [Suspect]
     Active Substance: ALBUTEROL SULFATE
     Indication: Wheezing
     Dosage: UNK, BID 2 PUFFS TWICE A DAY
     Dates: start: 20230626

REACTIONS (4)
  - Lower respiratory tract infection [Unknown]
  - Device malfunction [Unknown]
  - Drug dose omission by device [Unknown]
  - Product use in unapproved indication [Unknown]
